FAERS Safety Report 20162373 (Version 7)
Quarter: 2022Q1

REPORT INFORMATION
  Report Type: Report from Study
  Country: US (occurrence: US)
  Receive Date: 20211208
  Receipt Date: 20220113
  Transmission Date: 20220423
  Serious: Yes (Hospitalization)
  Sender: FDA-Public Use
  Company Number: US-KARYOPHARM-2021KPT001497

PATIENT

DRUGS (18)
  1. SELINEXOR [Suspect]
     Active Substance: SELINEXOR
     Indication: Metastatic malignant melanoma
     Dosage: 80 MG, WEEKLY
     Route: 048
     Dates: start: 20210720, end: 20210802
  2. SELINEXOR [Suspect]
     Active Substance: SELINEXOR
     Dosage: 80 MG, WEEKLY
     Route: 048
     Dates: start: 20210831, end: 20211130
  3. SELINEXOR [Suspect]
     Active Substance: SELINEXOR
     Dosage: 80 MG, WEEKLY
     Route: 048
     Dates: start: 20220104
  4. PEMBROLIZUMAB [Suspect]
     Active Substance: PEMBROLIZUMAB
     Indication: Metastatic malignant melanoma
     Dosage: 400 MG ,ONCE EVERY 6 WEEKS
     Route: 042
     Dates: start: 20210720
  5. CALCIUM CARBONATE\VITAMIN D [Concomitant]
     Active Substance: CALCIUM CARBONATE\VITAMIN D
     Indication: Supplementation therapy
     Dosage: 600 MG, QD
     Route: 048
     Dates: start: 20211012, end: 20211206
  6. OLANZAPINE [Concomitant]
     Active Substance: OLANZAPINE
     Indication: Prophylaxis
     Dosage: 5 MG, WEEKLY
     Route: 048
     Dates: start: 20210720
  7. ZOFRAN [Concomitant]
     Active Substance: ONDANSETRON HYDROCHLORIDE
     Indication: Prophylaxis
     Dosage: 8 MG, PRN
     Route: 048
     Dates: start: 20210720
  8. PREDNISONE [Concomitant]
     Active Substance: PREDNISONE
     Indication: Polymyalgia rheumatica
     Dosage: 5 MG, QD
     Route: 048
     Dates: start: 2021, end: 20211115
  9. LEVOTHYROXINE [Concomitant]
     Active Substance: LEVOTHYROXINE
     Indication: Hypothyroidism
     Dosage: 150 UG, QD
     Route: 048
     Dates: start: 2021
  10. DIETARY SUPPLEMENT [Concomitant]
     Active Substance: DIETARY SUPPLEMENT
     Indication: Supplementation therapy
     Dosage: 600 MG, QD
     Route: 048
     Dates: start: 2021
  11. OMEPRAZOLE [Concomitant]
     Active Substance: OMEPRAZOLE
     Indication: Polymyalgia rheumatica
     Dosage: 40 MG, QD
     Route: 048
     Dates: start: 20210608, end: 20211123
  12. OMEPRAZOLE [Concomitant]
     Active Substance: OMEPRAZOLE
     Indication: Gastrointestinal haemorrhage
     Dosage: 40 MG, QD
     Route: 048
     Dates: start: 20210806, end: 20211123
  13. ASPIRIN [Concomitant]
     Active Substance: ASPIRIN
     Dosage: 81 MG, QD
     Route: 048
     Dates: start: 2021, end: 20210802
  14. ASPIRIN [Concomitant]
     Active Substance: ASPIRIN
     Dosage: UNK
  15. DIETARY SUPPLEMENT [Concomitant]
     Active Substance: DIETARY SUPPLEMENT
     Indication: Supplementation therapy
     Dosage: 1 DOSAGE FORM, QD
     Route: 048
     Dates: start: 2021
  16. AMIODARONE [Concomitant]
     Active Substance: AMIODARONE
     Indication: Atrial fibrillation
     Dosage: 200 MG, QD
     Route: 065
     Dates: start: 20211130, end: 20220104
  17. METOPROLOL [Concomitant]
     Active Substance: METOPROLOL
     Indication: Blood pressure management
     Dosage: 25 MG, QD
     Route: 065
     Dates: start: 20211130, end: 20220104
  18. ELIQUIS [Concomitant]
     Active Substance: APIXABAN
     Indication: Pulmonary embolism
     Dosage: 5 MG, BID
     Route: 065
     Dates: start: 20211207

REACTIONS (2)
  - Pulmonary embolism [Recovered/Resolved]
  - Pulmonary cavitation [Recovered/Resolved]

NARRATIVE: CASE EVENT DATE: 20211124
